FAERS Safety Report 4804160-X (Version None)
Quarter: 2005Q4

REPORT INFORMATION
  Report Type: 
  Country: None (occurrence: None)
  Receive Date: 20051014
  Receipt Date: 20051003
  Transmission Date: 20060501
  Serious: Yes (Other)
  Sender: FDA-Public Use
  Company Number: 2005137186

PATIENT
  Sex: Female
  Weight: 59.8748 kg

DRUGS (3)
  1. DILANTIN [Suspect]
     Indication: CONVULSION
     Dosage: SEE IMAGE
     Dates: start: 19970101
  2. NEURONTIN [Suspect]
     Indication: CONVULSION
     Dosage: 1800 MG (600 MG, 3 IN 1 D)
  3. TYLENOL [Concomitant]

REACTIONS (6)
  - ABDOMINAL DISTENSION [None]
  - ANAEMIA [None]
  - BLOOD HUMAN CHORIONIC GONADOTROPIN ABNORMAL [None]
  - BREAST TENDERNESS [None]
  - CONVULSION [None]
  - DRUG EXPOSURE DURING PREGNANCY [None]
